FAERS Safety Report 7086757-2 (Version None)
Quarter: 2010Q4

REPORT INFORMATION
  Report Type: 
  Country: None (occurrence: None)
  Receive Date: 20101105
  Receipt Date: 20101029
  Transmission Date: 20110411
  Serious: Yes (Death, Hospitalization)
  Sender: FDA-Public Use
  Company Number: JP-ABBOTT-10P-087-0678977-00

PATIENT
  Age: 50 Year
  Sex: Male

DRUGS (11)
  1. LEUPRORELIN DEPOT [Suspect]
     Indication: PROSTATE CANCER
     Route: 058
     Dates: start: 20100714, end: 20101006
  2. TAKEPRON [Concomitant]
     Indication: GASTRIC ULCER
     Route: 048
     Dates: start: 20091027, end: 20101007
  3. PLAVIX [Concomitant]
     Indication: CEREBRAL INFARCTION
     Route: 048
     Dates: start: 20091027, end: 20101007
  4. MYSLEE [Concomitant]
     Indication: INSOMNIA
     Route: 048
     Dates: start: 20091027, end: 20101007
  5. PERINDOPRIL ERBUMINE [Concomitant]
     Indication: HYPERTENSION
     Route: 048
     Dates: start: 20091027, end: 20101007
  6. SILODOSIN [Concomitant]
     Indication: DYSURIA
     Route: 048
     Dates: start: 20100121, end: 20101007
  7. BLADDERON [Concomitant]
     Indication: DYSURIA
     Route: 048
     Dates: start: 20100420, end: 20101007
  8. BUP-4 [Concomitant]
     Indication: DYSURIA
     Route: 048
     Dates: start: 20100826, end: 20100910
  9. AMARYL [Concomitant]
     Indication: DIABETES MELLITUS
     Dates: start: 20100824, end: 20101007
  10. TALION [Concomitant]
     Indication: HYPERSENSITIVITY
     Route: 048
     Dates: start: 20100630, end: 20101007
  11. PROSTAL [Concomitant]
     Indication: PROSTATE CANCER
     Route: 048
     Dates: start: 20100714, end: 20101007

REACTIONS (1)
  - INTERSTITIAL LUNG DISEASE [None]
